FAERS Safety Report 5895071-X (Version None)
Quarter: 2008Q3

REPORT INFORMATION
  Report Type: 
  Country: None (occurrence: None)
  Receive Date: 20080924
  Receipt Date: 20080916
  Transmission Date: 20090109
  Serious: Yes (Hospitalization)
  Sender: FDA-Public Use
  Company Number: CH-WATSON-2008-05545

PATIENT
  Age: 11 Year
  Sex: Female

DRUGS (5)
  1. ETOPOSIDE (WATSON LABORATORIES) [Suspect]
     Indication: NON-HODGKIN'S LYMPHOMA
     Dosage: 100 MG/M2, DAILY X 2 DAYS
     Route: 065
     Dates: start: 20080101, end: 20080101
  2. DEXAMETHASONE TAB [Suspect]
     Indication: NON-HODGKIN'S LYMPHOMA
     Dosage: 10 MG/M2, DAILY X 5 DAYS
     Route: 065
     Dates: start: 20080101, end: 20080101
  3. ARA-C [Suspect]
     Indication: NON-HODGKIN'S LYMPHOMA
     Dosage: 150 MG/M2/DAY X 2 DAYS
     Route: 065
     Dates: start: 20080101, end: 20080101
  4. METHOTREXATE [Suspect]
     Indication: NON-HODGKIN'S LYMPHOMA
     Dosage: 5 G/M2, DAILY X1 DAY
     Route: 065
     Dates: start: 20080101, end: 20080101
  5. IFOSFAMIDE [Suspect]
     Indication: NON-HODGKIN'S LYMPHOMA
     Dosage: 800 MG/M2, DAILY X 5 DAYS
     Route: 065
     Dates: start: 20080101, end: 20080101

REACTIONS (2)
  - APPENDICITIS [None]
  - NEUTROPENIA [None]
